FAERS Safety Report 13235081 (Version 1)
Quarter: 2017Q1

REPORT INFORMATION
  Report Type: Spontaneous
  Country: GB (occurrence: GB)
  Receive Date: 20170215
  Receipt Date: 20170215
  Transmission Date: 20170428
  Serious: Yes (Hospitalization)
  Sender: FDA-Public Use
  Company Number: GB-PFIZER INC-1552636

PATIENT
  Age: 8 Year
  Sex: Male
  Weight: 24 kg

DRUGS (7)
  1. VINCRISTINE SULFATE. [Suspect]
     Active Substance: VINCRISTINE SULFATE
     Indication: RHABDOMYOSARCOMA
     Dosage: 1.4 MG, 1X/DAY (1.4 MG, UNK (1.4 MG, DAY 1,8, AND 15, FREQ: 1 DAY, INTERVAL: 1)
     Route: 042
     Dates: start: 20121207
  2. COTRIMOXAZOLE [Concomitant]
     Active Substance: SULFAMETHOXAZOLE\TRIMETHOPRIM
     Dosage: 720 MG, UNK
     Dates: start: 20121210
  3. DOMPERIDONE [Concomitant]
     Active Substance: DOMPERIDONE
     Dosage: 40 MG, UNK
     Dates: start: 20121222
  4. DOXORUBICIN HCL [Suspect]
     Active Substance: DOXORUBICIN HYDROCHLORIDE
     Indication: RHABDOMYOSARCOMA
     Dosage: 27 MG, UNK (27 MG, WEEK 1, DAY1 AND 2)
     Route: 042
     Dates: start: 20121207
  5. DACTINOMYCIN [Suspect]
     Active Substance: DACTINOMYCIN
     Indication: RHABDOMYOSARCOMA
     Dosage: 1.4 MG, 1X/DAY (1.4 MG, WEEK 1, FREQ: 1 DAY; INTERVAL: 1)
     Route: 042
     Dates: start: 20121207
  6. IFOSFAMIDE. [Suspect]
     Active Substance: IFOSFAMIDE
     Indication: RHABDOMYOSARCOMA
     Dosage: 2700 MG, UNK (2700 MG, WEEK 1, DAY 1 AND 2)
     Route: 042
     Dates: start: 20121207
  7. AMLODIPINE [Concomitant]
     Active Substance: AMLODIPINE BESYLATE
     Dosage: 10 MG, UNK
     Dates: start: 20121207

REACTIONS (1)
  - Febrile neutropenia [Recovered/Resolved]

NARRATIVE: CASE EVENT DATE: 20121221
